FAERS Safety Report 18415368 (Version 2)
Quarter: 2020Q4

REPORT INFORMATION
  Report Type: Spontaneous
  Country: IR (occurrence: IR)
  Receive Date: 20201022
  Receipt Date: 20201030
  Transmission Date: 20210114
  Serious: Yes (Life-Threatening, Hospitalization, Other)
  Sender: FDA-Public Use
  Company Number: IR-PFIZER INC-2020399475

PATIENT
  Age: 18 Year
  Sex: Female

DRUGS (2)
  1. METHYLPREDNISOLONE SODIUM SUCCINATE. [Suspect]
     Active Substance: METHYLPREDNISOLONE SODIUM SUCCINATE
     Indication: LUPUS NEPHRITIS
     Dosage: UNK (SECOND METYLPREDNISOLON PULSE)
  2. ENALAPRIL [Suspect]
     Active Substance: ENALAPRIL
     Indication: LUPUS NEPHRITIS
     Dosage: UNK

REACTIONS (3)
  - Angioedema [Unknown]
  - Respiratory distress [Unknown]
  - Swelling [Unknown]
